FAERS Safety Report 14740864 (Version 9)
Quarter: 2019Q3

REPORT INFORMATION
  Report Type: Spontaneous
  Country: US (occurrence: US)
  Receive Date: 20180410
  Receipt Date: 20190826
  Transmission Date: 20191004
  Serious: Yes (Hospitalization, Other)
  Sender: FDA-Public Use
  Company Number: US-GLAXOSMITHKLINE-US2018GSK059971

PATIENT
  Sex: Female

DRUGS (6)
  1. OMEPRAZOLE. [Suspect]
     Active Substance: OMEPRAZOLE
     Indication: GASTROOESOPHAGEAL REFLUX DISEASE
     Dosage: 20 MG, QD
     Route: 048
  2. PREVACID [Suspect]
     Active Substance: LANSOPRAZOLE
     Indication: PRODUCT USED FOR UNKNOWN INDICATION
     Dosage: 30 MG, QD
     Route: 048
  3. PANTOPRAZOLE [Suspect]
     Active Substance: PANTOPRAZOLE
     Indication: GASTROOESOPHAGEAL REFLUX DISEASE
     Dosage: 40 MG, BID
     Route: 048
  4. RANITIDINE HYDROCHLORIDE. [Suspect]
     Active Substance: RANITIDINE HYDROCHLORIDE
     Indication: PRODUCT USED FOR UNKNOWN INDICATION
     Dosage: 150 MG, QD
     Route: 048
  5. ZANTAC [Suspect]
     Active Substance: RANITIDINE HYDROCHLORIDE
     Indication: PRODUCT USED FOR UNKNOWN INDICATION
     Dosage: 150 MG, QD
     Route: 065
  6. PREVACID [Suspect]
     Active Substance: LANSOPRAZOLE
     Indication: PRODUCT USED FOR UNKNOWN INDICATION
     Dosage: UNK
     Route: 065

REACTIONS (18)
  - Pollakiuria [Unknown]
  - Polyuria [Unknown]
  - Hypertensive nephropathy [Unknown]
  - Azotaemia [Unknown]
  - Chronic kidney disease [Unknown]
  - Renal artery stenosis [Unknown]
  - Renal impairment [Unknown]
  - Nephropathy [Unknown]
  - Renal failure [Unknown]
  - Proteinuria [Unknown]
  - Dysuria [Unknown]
  - Acute kidney injury [Unknown]
  - Renal cyst [Unknown]
  - Diabetic nephropathy [Unknown]
  - Renal artery arteriosclerosis [Unknown]
  - Urinary retention [Unknown]
  - Nephrolithiasis [Unknown]
  - Nephrogenic anaemia [Unknown]
